FAERS Safety Report 14168157 (Version 1)
Quarter: 2017Q4

REPORT INFORMATION
  Report Type: Report from Study
  Country: None (occurrence: CA)
  Receive Date: 20171108
  Receipt Date: 20171108
  Transmission Date: 20180321
  Serious: Yes (Other)
  Sender: FDA-Public Use
  Company Number: CA-ABBVIE-17K-028-2151722-00

PATIENT
  Age: 47 Year
  Sex: Male

DRUGS (1)
  1. HUMIRA [Suspect]
     Active Substance: ADALIMUMAB
     Indication: CROHN^S DISEASE
     Route: 058
     Dates: start: 20090330

REACTIONS (6)
  - Skin discolouration [Not Recovered/Not Resolved]
  - Viral infection [Unknown]
  - Road traffic accident [Recovered/Resolved]
  - Limb injury [Recovered/Resolved]
  - Dizziness [Unknown]
  - Ligament sprain [Recovered/Resolved]

NARRATIVE: CASE EVENT DATE: 2017
